FAERS Safety Report 4664421-4 (Version None)
Quarter: 2005Q2

REPORT INFORMATION
  Report Type: 
  Country: None (occurrence: None)
  Receive Date: 20050516
  Receipt Date: 20050516
  Transmission Date: 20051028
  Serious: No
  Sender: FDA-Public Use
  Company Number: None

PATIENT
  Sex: Female

DRUGS (1)
  1. CYLERT [Suspect]
     Indication: AMNESIA
     Dosage: 2 PO BID
     Route: 048

REACTIONS (1)
  - CARBON MONOXIDE POISONING [None]
